FAERS Safety Report 16065879 (Version 1)
Quarter: 2019Q2

REPORT INFORMATION
  Report Type: Spontaneous
  Country: US (occurrence: US)
  Receive Date: 20190312
  Receipt Date: 20190312
  Transmission Date: 20190711
  Serious: Yes (Death)
  Sender: FDA-Public Use
  Company Number: None

PATIENT
  Age: 23 Year
  Sex: Male
  Weight: 115.8 kg

DRUGS (19)
  1. AMLODIPINE [Concomitant]
     Active Substance: AMLODIPINE BESYLATE
     Dates: start: 20190117, end: 20190212
  2. LEVOTHYROXINE. [Concomitant]
     Active Substance: LEVOTHYROXINE
     Dates: start: 20181129, end: 20190213
  3. PREDNISONE. [Concomitant]
     Active Substance: PREDNISONE
     Dates: start: 20181122, end: 20190125
  4. ACYCLOVIR. [Concomitant]
     Active Substance: ACYCLOVIR
     Dates: start: 20181128, end: 20190214
  5. PANTOPRAZOLE [Concomitant]
     Active Substance: PANTOPRAZOLE
     Dates: start: 20181114, end: 20190125
  6. ERGOCALFIFEROL [Concomitant]
     Dates: start: 20190117, end: 20190209
  7. ERGOCALCIFEROL. [Concomitant]
     Active Substance: ERGOCALCIFEROL
     Dates: start: 20181227, end: 20190209
  8. HYDROMORPHINE [Concomitant]
     Active Substance: HYDROMORPHONE
     Dates: start: 20190209, end: 20190214
  9. PHYTONADIONE. [Concomitant]
     Active Substance: PHYTONADIONE
     Dates: start: 20190118, end: 20190125
  10. MEROPENEM IV [Concomitant]
     Dates: start: 20190119, end: 20190214
  11. DOCUSATE [Concomitant]
     Active Substance: DOCUSATE
     Dates: start: 20190130, end: 20190212
  12. COTRIMOXAZOLE DS [Concomitant]
     Dates: start: 20190117, end: 20190120
  13. LEVETIRACETAM. [Concomitant]
     Active Substance: LEVETIRACETAM
     Dates: start: 20181113, end: 20190214
  14. LEVOFLOXACIN. [Concomitant]
     Active Substance: LEVOFLOXACIN
     Dates: start: 20190114, end: 20190213
  15. KYMRIAH [Suspect]
     Active Substance: TISAGENLECLEUCEL
     Indication: ACUTE LYMPHOCYTIC LEUKAEMIA
     Dosage: ?          OTHER FREQUENCY:ONCE;?
     Route: 041
     Dates: start: 20190118
  16. ISAVUCONAZONIUM [Concomitant]
     Active Substance: ISAVUCONAZONIUM
     Dates: start: 20181128, end: 20190214
  17. SEVELAMER [Concomitant]
     Active Substance: SEVELAMER
     Dates: start: 20181116, end: 20190122
  18. URSODIOL. [Concomitant]
     Active Substance: URSODIOL
     Dates: start: 20181122, end: 20190214
  19. FENTANYL. [Concomitant]
     Active Substance: FENTANYL
     Dates: start: 20190213, end: 20190214

REACTIONS (3)
  - Splenic haemorrhage [None]
  - Disease progression [None]
  - Cytokine release syndrome [None]

NARRATIVE: CASE EVENT DATE: 20190214
